FAERS Safety Report 22891542 (Version 2)
Quarter: 2023Q4

REPORT INFORMATION
  Report Type: Spontaneous
  Country: US (occurrence: US)
  Receive Date: 20230901
  Receipt Date: 20231101
  Transmission Date: 20240109
  Serious: No
  Sender: FDA-Public Use
  Company Number: US-BRISTOL-MYERS SQUIBB COMPANY-2023-123493

PATIENT
  Age: 56 Year
  Sex: Female
  Weight: 88.0 kg

DRUGS (1)
  1. POMALYST [Suspect]
     Active Substance: POMALIDOMIDE
     Indication: Plasma cell myeloma
     Dosage: 1XDAYX21DAYON,7OFF
     Route: 048

REACTIONS (3)
  - White blood cell count decreased [Unknown]
  - Somnolence [Unknown]
  - Fatigue [Unknown]
